FAERS Safety Report 5713356-4 (Version None)
Quarter: 2008Q2

REPORT INFORMATION
  Report Type: 
  Country: None (occurrence: None)
  Receive Date: 20080422
  Receipt Date: 20080411
  Transmission Date: 20081010
  Serious: Yes (Disabling, Other)
  Sender: FDA-Public Use
  Company Number: US-PFIZER INC-2008023937

PATIENT
  Sex: Female
  Weight: 86.363 kg

DRUGS (4)
  1. LOPID [Suspect]
     Indication: BLOOD TRIGLYCERIDES INCREASED
     Dosage: DAILY DOSE:600MG-FREQ:DAILY
     Route: 048
     Dates: start: 20070101, end: 20070501
  2. LOPID [Interacting]
     Route: 048
     Dates: start: 20070501, end: 20071201
  3. AVELOX [Interacting]
     Indication: CELLULITIS
     Dosage: DAILY DOSE:400MG-FREQ:DAILY
     Route: 048
     Dates: start: 20071218, end: 20071223
  4. LEVOTHYROXINE SODIUM [Concomitant]
     Indication: HYPOTHYROIDISM

REACTIONS (6)
  - CELLULITIS [None]
  - DRUG INTERACTION [None]
  - FACE OEDEMA [None]
  - MYALGIA [None]
  - PYREXIA [None]
  - URTICARIA [None]
